FAERS Safety Report 22133404 (Version 3)
Quarter: 2023Q2

REPORT INFORMATION
  Report Type: Spontaneous
  Country: DE (occurrence: DE)
  Receive Date: 20230324
  Receipt Date: 20230407
  Transmission Date: 20230722
  Serious: Yes (Hospitalization, Other)
  Sender: FDA-Public Use
  Company Number: DE-NOVOPROD-1040416

PATIENT
  Age: 54 Year
  Sex: Female
  Weight: 83 kg

DRUGS (2)
  1. NOVORAPID [Suspect]
     Active Substance: INSULIN ASPART
     Indication: Type 1 diabetes mellitus
     Dosage: 40 - 50 IU, IN ACUTE DERAILMENT HIGHER DOSE
     Route: 058
     Dates: start: 202302
  2. NOVORAPID [Suspect]
     Active Substance: INSULIN ASPART
     Dosage: UNK
     Route: 058
     Dates: end: 20230304

REACTIONS (3)
  - Diabetic ketoacidotic hyperglycaemic coma [Recovering/Resolving]
  - Drug ineffective [Unknown]
  - Increased insulin requirement [Unknown]

NARRATIVE: CASE EVENT DATE: 20230302
